FAERS Safety Report 11545885 (Version 1)
Quarter: 2015Q3

REPORT INFORMATION
  Report Type: Spontaneous
  Country: CN (occurrence: CN)
  Receive Date: 20150924
  Receipt Date: 20150924
  Transmission Date: 20151125
  Serious: Yes (Life-Threatening, Other)
  Sender: FDA-Public Use
  Company Number: CN-GLAXOSMITHKLINE-CN2015GSK132790

PATIENT
  Age: 53 Year
  Sex: Female

DRUGS (2)
  1. CEFUROXIME SODIUM. [Suspect]
     Active Substance: CEFUROXIME SODIUM
     Indication: SURGERY
  2. SODIUM CHLORIDE. [Concomitant]
     Active Substance: SODIUM CHLORIDE
     Indication: SURGERY

REACTIONS (10)
  - Blood pressure decreased [Recovered/Resolved]
  - Anaphylactic shock [Unknown]
  - Oropharyngeal discomfort [Unknown]
  - Ventricular fibrillation [Unknown]
  - Rales [Unknown]
  - Dilatation ventricular [Unknown]
  - Chest pain [Unknown]
  - Pulmonary oedema [Unknown]
  - Confusional state [Unknown]
  - Dyspnoea [Unknown]
